FAERS Safety Report 25110238 (Version 3)
Quarter: 2025Q2

REPORT INFORMATION
  Report Type: Spontaneous
  Country: US (occurrence: US)
  Receive Date: 20250324
  Receipt Date: 20250408
  Transmission Date: 20250717
  Serious: No
  Sender: ROCHE
  Company Number: US-ROCHE-10000232631

PATIENT
  Age: 65 Year
  Sex: Male

DRUGS (2)
  1. XOLAIR PFS [Suspect]
     Active Substance: OMALIZUMAB
     Indication: Mast cell activation syndrome
     Dosage: STRENGTH:150 MG/ML
     Route: 058
     Dates: start: 202405
  2. XOLAIR PFS [Suspect]
     Active Substance: OMALIZUMAB
     Indication: Urticaria

REACTIONS (13)
  - Flatulence [Unknown]
  - Chest discomfort [Unknown]
  - Hiccups [Unknown]
  - Hyperhidrosis [Unknown]
  - Headache [Unknown]
  - Eructation [Unknown]
  - Off label use [Unknown]
  - Sinus headache [Unknown]
  - Bedridden [Unknown]
  - Dizziness [Unknown]
  - Fatigue [Unknown]
  - Balance disorder [Unknown]
  - Loss of consciousness [Unknown]

NARRATIVE: CASE EVENT DATE: 20250307
